FAERS Safety Report 9710632 (Version 1)
Quarter: 2013Q4

REPORT INFORMATION
  Report Type: Spontaneous
  Country: US (occurrence: US)
  Receive Date: 20131126
  Receipt Date: 20131126
  Transmission Date: 20140711
  Serious: No
  Sender: FDA-Public Use
  Company Number: US-BRISTOL-MYERS SQUIBB COMPANY-18998963

PATIENT
  Age: 61 Year
  Sex: Male
  Weight: 105.21 kg

DRUGS (2)
  1. BYDUREON [Suspect]
     Indication: TYPE 2 DIABETES MELLITUS
     Dosage: NO OF DOSES:10
  2. METFORMIN [Concomitant]
     Dosage: 1DF:1000 UNIT NOS

REACTIONS (5)
  - Flatulence [Unknown]
  - Nausea [Unknown]
  - Diarrhoea [Unknown]
  - Injection site nodule [Recovering/Resolving]
  - Injection site mass [Recovered/Resolved]
